FAERS Safety Report 16993031 (Version 2)
Quarter: 2020Q1

REPORT INFORMATION
  Report Type: Spontaneous
  Country: GB (occurrence: GB)
  Receive Date: 20191105
  Receipt Date: 20200121
  Transmission Date: 20200409
  Serious: Yes (Other)
  Sender: FDA-Public Use
  Company Number: GB-SUN PHARMACEUTICAL INDUSTRIES LTD-2019RR-223841

PATIENT
  Sex: Female

DRUGS (3)
  1. HALOPERIDOL. [Suspect]
     Active Substance: HALOPERIDOL
     Indication: SEDATION
     Dosage: SMALL DOSES ()
     Route: 065
  2. METHYLPREDNISOLONE. [Concomitant]
     Active Substance: METHYLPREDNISOLONE
     Indication: ENCEPHALITIS AUTOIMMUNE
     Dosage: UNK
     Route: 042
  3. RISPERIDONE. [Suspect]
     Active Substance: RISPERIDONE
     Indication: SEDATION
     Dosage: SMALL DOSES ()
     Route: 065

REACTIONS (8)
  - Cogwheel rigidity [Recovering/Resolving]
  - Fall [Unknown]
  - Urinary incontinence [Recovering/Resolving]
  - Bradykinesia [Recovering/Resolving]
  - Extrapyramidal disorder [Recovering/Resolving]
  - Hypersensitivity [Unknown]
  - Hallucination, visual [Recovering/Resolving]
  - Drug intolerance [Unknown]
